FAERS Safety Report 6228045-X (Version None)
Quarter: 2009Q2

REPORT INFORMATION
  Report Type: 
  Country: None (occurrence: None)
  Receive Date: 20090612
  Receipt Date: 20090605
  Transmission Date: 20091009
  Serious: Yes (Hospitalization, Other)
  Sender: FDA-Public Use
  Company Number: US-MERCK-0802USA03901

PATIENT
  Age: 73 Year
  Sex: Female
  Weight: 80 kg

DRUGS (2)
  1. FOSAMAX [Suspect]
     Indication: OSTEOPOROSIS
     Route: 048
     Dates: start: 20050329, end: 20070403
  2. LOTREL [Concomitant]
     Indication: HYPERTENSION
     Route: 065
     Dates: start: 20060101

REACTIONS (12)
  - ARTHROPATHY [None]
  - CHEST PAIN [None]
  - FALL [None]
  - GASTRITIS [None]
  - HYPERTENSION [None]
  - HYPOTENSION [None]
  - JAW DISORDER [None]
  - ORAL DISORDER [None]
  - OSTEOARTHRITIS [None]
  - OSTEOMYELITIS [None]
  - OSTEONECROSIS [None]
  - WRIST FRACTURE [None]
